FAERS Safety Report 15876998 (Version 2)
Quarter: 2019Q1

REPORT INFORMATION
  Report Type: Spontaneous
  Country: PL (occurrence: PL)
  Receive Date: 20190128
  Receipt Date: 20190311
  Transmission Date: 20190417
  Serious: Yes (Death, Other)
  Sender: FDA-Public Use
  Company Number: PL-CELLTRION INC.-2019PL018155

PATIENT

DRUGS (3)
  1. BORTEZOMIB. [Suspect]
     Active Substance: BORTEZOMIB
     Indication: WALDENSTROM^S MACROGLOBULINAEMIA
     Dosage: UNK
     Route: 065
  2. DEXAMETHASONE. [Suspect]
     Active Substance: DEXAMETHASONE
     Indication: WALDENSTROM^S MACROGLOBULINAEMIA
     Dosage: UNK
     Route: 065
  3. RITUXIMAB (UNKNOWN) [Suspect]
     Active Substance: RITUXIMAB
     Indication: WALDENSTROM^S MACROGLOBULINAEMIA
     Dosage: UNK
     Route: 065

REACTIONS (13)
  - Blood pressure decreased [Fatal]
  - General physical condition abnormal [Fatal]
  - Dysphagia [Fatal]
  - Weight decreased [Fatal]
  - Anaemia [Fatal]
  - Cachexia [Fatal]
  - Palpitations [Fatal]
  - Abdominal pain upper [Fatal]
  - Body temperature increased [Fatal]
  - Thrombocytopenia [Fatal]
  - Asthenia [Fatal]
  - Product use in unapproved indication [Fatal]
  - Inflammatory marker increased [Fatal]
